FAERS Safety Report 6000362-8 (Version None)
Quarter: 2008Q4

REPORT INFORMATION
  Report Type: 
  Country: None (occurrence: None)
  Receive Date: 20081211
  Receipt Date: 20081211
  Transmission Date: 20090506
  Serious: No
  Sender: FDA-Public Use
  Company Number: None

PATIENT
  Age: 11 Year
  Sex: Male

DRUGS (1)
  1. ADDERALL XR 10 [Suspect]
     Indication: ATTENTION DEFICIT/HYPERACTIVITY DISORDER
     Dosage: 10MG ONCE DAILY PO
     Route: 048
     Dates: start: 20061101, end: 20061231

REACTIONS (4)
  - DRUG INEFFECTIVE [None]
  - DYSKINESIA [None]
  - OBSESSIVE-COMPULSIVE DISORDER [None]
  - TIC [None]
